FAERS Safety Report 12266058 (Version 3)
Quarter: 2016Q2

REPORT INFORMATION
  Report Type: Report from Study
  Country: CA (occurrence: CA)
  Receive Date: 20160413
  Receipt Date: 20160624
  Transmission Date: 20160815
  Serious: Yes (Other)
  Sender: FDA-Public Use
  Company Number: CA-GILEAD-2016-0196471

PATIENT
  Age: 88 Year
  Sex: Female

DRUGS (10)
  1. LEDIPASVIR/SOFOSBUVIR [Suspect]
     Active Substance: LEDIPASVIR\SOFOSBUVIR
     Indication: HEPATITIS C
     Dosage: 1 DF, UNK
     Route: 048
     Dates: start: 20160129
  2. VITAMIN D                          /00107901/ [Concomitant]
     Active Substance: ERGOCALCIFEROL
  3. SPIRONOLACTONE. [Concomitant]
     Active Substance: SPIRONOLACTONE
  4. VITAMIN B12 [Concomitant]
     Active Substance: CYANOCOBALAMIN
  5. VITAMIN K [Concomitant]
     Active Substance: PHYTONADIONE
  6. MAGNESIUM [Concomitant]
     Active Substance: MAGNESIUM
  7. PROBIOTICS NOS [Concomitant]
     Active Substance: PROBIOTICS NOS
  8. VITAMIN B COMPLEX [Concomitant]
     Active Substance: CYANOCOBALAMIN\DEXPANTHENOL\NIACINAMIDE\PYRIDOXINE HYDROCHLORIDE\RIBOFLAVIN 5^-PHOSPHATE SODIUM\THIAMINE HYDROCHLORIDE\VITAMIN B COMPLEX
  9. IRON [Concomitant]
     Active Substance: IRON
  10. SYNTHROID [Concomitant]
     Active Substance: LEVOTHYROXINE SODIUM

REACTIONS (18)
  - Malaise [Unknown]
  - Irritability [Unknown]
  - Mental impairment [Unknown]
  - Peripheral coldness [Unknown]
  - Fatigue [Unknown]
  - Asthenia [Unknown]
  - Pallor [Unknown]
  - Eating disorder [Unknown]
  - Dysphonia [Unknown]
  - Hypophagia [Unknown]
  - Urinary tract infection [Not Recovered/Not Resolved]
  - Hypersomnia [Unknown]
  - Asthenia [Recovered/Resolved]
  - Pneumonia [Unknown]
  - Tremor [Unknown]
  - Cough [Unknown]
  - Dysphagia [Unknown]
  - Personality change [Unknown]

NARRATIVE: CASE EVENT DATE: 2016
